FAERS Safety Report 9690491 (Version 1)
Quarter: 2013Q4

REPORT INFORMATION
  Report Type: Spontaneous
  Country: CN (occurrence: CN)
  Receive Date: 20131115
  Receipt Date: 20131115
  Transmission Date: 20140711
  Serious: Yes (Life-Threatening)
  Sender: FDA-Public Use
  Company Number: CN-BAYER-2013-135259

PATIENT
  Age: 70 Year
  Sex: Male

DRUGS (1)
  1. GLUCOBAY [Suspect]
     Indication: UNEVALUABLE EVENT
     Dosage: 50 MG, QD
     Route: 048
     Dates: start: 20021101, end: 20120315

REACTIONS (1)
  - Hypoglycaemic coma [Recovering/Resolving]
